FAERS Safety Report 20418274 (Version 2)
Quarter: 2022Q1

REPORT INFORMATION
  Report Type: Spontaneous
  Country: DE (occurrence: DE)
  Receive Date: 20220202
  Receipt Date: 20220203
  Transmission Date: 20220424
  Serious: Yes (Hospitalization)
  Sender: FDA-Public Use
  Company Number: DE-ROCHE-2803296

PATIENT
  Age: 54 Year
  Sex: Female
  Weight: 93 kg

DRUGS (3)
  1. TRASTUZUMAB [Suspect]
     Active Substance: TRASTUZUMAB
     Indication: Breast cancer
     Dosage: UNK
     Route: 042
     Dates: start: 20210330, end: 20210330
  2. PEMBROLIZUMAB [Suspect]
     Active Substance: PEMBROLIZUMAB
     Indication: Breast cancer
     Dosage: UNK
     Route: 042
     Dates: start: 20210329, end: 20210329
  3. DULOXETINE [Concomitant]
     Active Substance: DULOXETINE

REACTIONS (4)
  - Panic reaction [Recovered/Resolved]
  - Hyperventilation [Recovered/Resolved]
  - Back pain [Recovered/Resolved]
  - Acute phase reaction [Unknown]

NARRATIVE: CASE EVENT DATE: 20210330
